FAERS Safety Report 23989406 (Version 1)
Quarter: 2024Q2

REPORT INFORMATION
  Report Type: Spontaneous
  Country: DE (occurrence: DE)
  Receive Date: 20240619
  Receipt Date: 20240619
  Transmission Date: 20240716
  Serious: Yes (Hospitalization, Other)
  Sender: FDA-Public Use
  Company Number: DE-ROCHE-2897341

PATIENT
  Age: 60 Year
  Sex: Female
  Weight: 80.7 kg

DRUGS (32)
  1. PEMETREXED [Suspect]
     Active Substance: PEMETREXED
     Indication: Non-small cell lung cancer metastatic
     Dosage: 887.5 MILLIGRAM
     Route: 042
     Dates: start: 20210802
  2. CARBOPLATIN [Suspect]
     Active Substance: CARBOPLATIN
     Indication: Non-small cell lung cancer metastatic
     Dosage: 390 MILLIGRAM
     Route: 042
     Dates: start: 20210802
  3. MCP [Concomitant]
     Active Substance: METOCLOPRAMIDE HYDROCHLORIDE
     Indication: Product used for unknown indication
     Dosage: 10 MILLIGRAM,0.5   DAY
     Route: 065
  4. ZOPICLONE [Concomitant]
     Active Substance: ZOPICLONE
     Indication: Restlessness
     Dosage: 7.5 MILLIGRAM, ONCE A DAY
     Route: 065
  5. POTASSIUM CARBONATE\POTASSIUM CITRATE [Concomitant]
     Active Substance: POTASSIUM CARBONATE\POTASSIUM CITRATE
     Indication: Hypokalaemia
     Dosage: 200 MILLIGRAM, 0.5 DAY
     Route: 065
     Dates: start: 20210828, end: 20210828
  6. POTASSIUM CARBONATE\POTASSIUM CITRATE [Concomitant]
     Active Substance: POTASSIUM CARBONATE\POTASSIUM CITRATE
     Dosage: 4000 MILLIGRAM,0.33 DAY
     Route: 065
     Dates: start: 20210831, end: 20210831
  7. POTASSIUM CARBONATE\POTASSIUM CITRATE [Concomitant]
     Active Substance: POTASSIUM CARBONATE\POTASSIUM CITRATE
     Dosage: 4000 MILLIGRAM,0.33 DAY
     Route: 065
     Dates: start: 20210904, end: 20210904
  8. Kalinor-retard [Concomitant]
     Indication: Hypokalaemia
     Dosage: 200 MILLIGRAM, 0.5 DAY
     Route: 065
     Dates: start: 20210828, end: 20210828
  9. Kalinor-retard [Concomitant]
     Dosage: 1200 MILLIGRAM,0.33 DAY
     Route: 065
     Dates: start: 20210901, end: 20210911
  10. Kalinor-retard [Concomitant]
     Dosage: 1200 MILLIGRAM,0.33 DAY
     Route: 065
     Dates: start: 20210827, end: 20210828
  11. TIRAGOLUMAB [Concomitant]
     Active Substance: TIRAGOLUMAB
     Indication: Non-small cell lung cancer metastatic
     Dosage: UNK,DATE OF MOST RECENT DOSE OF BLINDED TIRAGOLUMAB PRIOR TO AE/SAE ONSET: 02/AUG/2021, 3 TIMES A WE
     Route: 065
     Dates: start: 20210802
  12. PANTOPRAZOLE SODIUM [Concomitant]
     Active Substance: PANTOPRAZOLE SODIUM
     Indication: Product used for unknown indication
     Dosage: 40 MILLIGRAM, ONCE A DAY
     Route: 065
  13. PIPAMPERONE [Concomitant]
     Active Substance: PIPAMPERONE
     Indication: Restlessness
     Dosage: 40 MILLIGRAM, ONCE A DAY
     Route: 065
     Dates: end: 20210827
  14. PIPAMPERONE [Concomitant]
     Active Substance: PIPAMPERONE
     Dosage: 20 MILLIGRAM, ONCE A DAY
     Route: 065
     Dates: start: 20210826, end: 20210921
  15. ATEZOLIZUMAB [Concomitant]
     Active Substance: ATEZOLIZUMAB
     Indication: Non-small cell lung cancer metastatic
     Dosage: UNK,DATE OF MOST RECENT DOSE OF BLINDED ATEZOLIZUMAB PRIOR TO AE/SAE ONSET: 02/AUG/2021, 3 TIMES A W
     Route: 065
     Dates: start: 20210802
  16. ENOXAPARIN SODIUM [Concomitant]
     Active Substance: ENOXAPARIN SODIUM
     Indication: Embolism
     Dosage: 0.4 MILLIGRAM,0.5  DAY
     Route: 065
     Dates: end: 20210905
  17. ENOXAPARIN SODIUM [Concomitant]
     Active Substance: ENOXAPARIN SODIUM
     Indication: Thrombosis
     Dosage: 0.2 MILLIGRAM, ONCE A DAY
     Route: 065
     Dates: end: 20210906
  18. AKYNZEO [Concomitant]
     Indication: Product used for unknown indication
     Dosage: 300 MILLIGRAM
     Route: 065
     Dates: start: 20210802
  19. PEMBROLIZUMAB [Concomitant]
     Active Substance: PEMBROLIZUMAB
     Indication: Non-small cell lung cancer metastatic
     Dosage: UNK,DATE OF MOST RECENT DOSE OF BLINDED PEMBROLIZUMAB PRIOR TO AE/SAE ONSET: 02/AUG/2021.
     Route: 065
     Dates: start: 20210802
  20. Tavor [Concomitant]
     Indication: Prophylaxis
     Dosage: 1 MILLIGRAM
     Route: 065
     Dates: start: 20210824, end: 20210824
  21. Tavor [Concomitant]
     Dosage: 1 MILLIGRAM
     Route: 065
     Dates: start: 20210915, end: 20210915
  22. FOLIC ACID [Concomitant]
     Active Substance: FOLIC ACID
     Indication: Product used for unknown indication
     Dosage: UNK
     Route: 065
     Dates: start: 20210827
  23. DEXAMETHASONE [Concomitant]
     Active Substance: DEXAMETHASONE
     Indication: Product used for unknown indication
     Dosage: 8 MILLIGRAM
     Route: 065
     Dates: start: 20210802
  24. FOLIC ACID [Concomitant]
     Active Substance: FOLIC ACID
     Indication: Prophylaxis
     Dosage: 0.4 MILLIGRAM, ONCE A DAY
     Route: 065
     Dates: start: 20210726, end: 20210831
  25. FOLIC ACID [Concomitant]
     Active Substance: FOLIC ACID
     Indication: Anaemia
     Dosage: 5 MILLIGRAM, ONCE A DAY
     Route: 065
     Dates: start: 20210827, end: 20210921
  26. DULOXETINE [Concomitant]
     Active Substance: DULOXETINE
     Indication: Depression
     Dosage: 30 MILLIGRAM, ONCE A DAY
     Route: 065
     Dates: start: 20210826, end: 20210831
  27. DULOXETINE [Concomitant]
     Active Substance: DULOXETINE
     Route: 065
     Dates: start: 20210922
  28. TORSEMIDE [Concomitant]
     Active Substance: TORSEMIDE
     Indication: Fluid retention
     Dosage: 10 MILLIGRAM, ONCE A DAY
     Route: 065
     Dates: start: 20210920
  29. ALBUMIN HUMAN [Concomitant]
     Active Substance: ALBUMIN HUMAN
     Indication: Anaemia
     Dosage: 100 MILLILITER
     Route: 065
     Dates: start: 20210829
  30. IODINE [Concomitant]
     Active Substance: IODINE
     Indication: Iodine deficiency
     Dosage: 100 MICROGRAM, ONCE A DAY
     Route: 065
     Dates: start: 20210921
  31. MIRTAZAPINE [Concomitant]
     Active Substance: MIRTAZAPINE
     Indication: Depression
     Dosage: 15 MILLIGRAM
     Route: 065
  32. PERENTEROL [Concomitant]
     Active Substance: SACCHAROMYCES CEREVISIAE
     Indication: Product used for unknown indication
     Dosage: 250 MILLIGRAM
     Route: 065

REACTIONS (1)
  - Peritonitis [Recovered/Resolved]

NARRATIVE: CASE EVENT DATE: 20210821
